FAERS Safety Report 4416924-5 (Version None)
Quarter: 2004Q3

REPORT INFORMATION
  Report Type: 
  Country: None (occurrence: None)
  Receive Date: 20040804
  Receipt Date: 20040804
  Transmission Date: 20050211
  Serious: Yes (Hospitalization)
  Sender: FDA-Public Use
  Company Number: None

PATIENT
  Age: 83 Year
  Sex: Female
  Weight: 51.4 kg

DRUGS (6)
  1. CELEXA [Suspect]
     Indication: DEPRESSION
     Dosage: 10 MG - 1/2 DAILYX2 DAY ORAL
     Route: 048
     Dates: start: 20040722, end: 20040725
  2. VERAPAMIL [Concomitant]
  3. AMBIEN [Concomitant]
  4. COZAAR [Concomitant]
  5. CELEXA [Concomitant]
  6. MECLIZINE [Concomitant]

REACTIONS (4)
  - ABDOMINAL PAIN [None]
  - DEHYDRATION [None]
  - INAPPROPRIATE ANTIDIURETIC HORMONE SECRETION [None]
  - PYREXIA [None]
